FAERS Safety Report 17829120 (Version 34)
Quarter: 2025Q2

REPORT INFORMATION
  Report Type: Report from Study
  Country: US (occurrence: US)
  Receive Date: 20200527
  Receipt Date: 20250522
  Transmission Date: 20250716
  Serious: Yes (Hospitalization, Other)
  Sender: TAKEDA
  Company Number: US-SHIRE-US202017476

PATIENT
  Age: 63 Year
  Sex: Male
  Weight: 73 kg

DRUGS (20)
  1. HUMAN IMMUNOGLOBULIN G [Suspect]
     Active Substance: HUMAN IMMUNOGLOBULIN G
     Indication: Immunodeficiency common variable
     Dosage: 9 GRAM, 1/WEEK
     Dates: start: 20200416
  2. HUMAN IMMUNOGLOBULIN G [Suspect]
     Active Substance: HUMAN IMMUNOGLOBULIN G
     Dosage: 10 GRAM, 1/WEEK
  3. HUMAN IMMUNOGLOBULIN G [Suspect]
     Active Substance: HUMAN IMMUNOGLOBULIN G
     Dosage: 5 GRAM, 2/WEEK
  4. PREDNISONE [Suspect]
     Active Substance: PREDNISONE
     Indication: Product used for unknown indication
  5. ALBUTEROL [Suspect]
     Active Substance: ALBUTEROL
     Indication: Product used for unknown indication
  6. VICTOZA [Suspect]
     Active Substance: LIRAGLUTIDE
     Indication: Product used for unknown indication
  7. DIPHENHYDRAMINE HYDROCHLORIDE [Concomitant]
     Active Substance: DIPHENHYDRAMINE HYDROCHLORIDE
  8. EPINEPHRINE [Concomitant]
     Active Substance: EPINEPHRINE
  9. METFORMIN HYDROCHLORIDE [Concomitant]
     Active Substance: METFORMIN HYDROCHLORIDE
  10. ALOGLIPTIN [Concomitant]
     Active Substance: ALOGLIPTIN
  11. LISINOPRIL [Concomitant]
     Active Substance: LISINOPRIL
  12. ROSUVASTATIN CALCIUM [Concomitant]
     Active Substance: ROSUVASTATIN CALCIUM
  13. ACETAMINOPHEN [Concomitant]
     Active Substance: ACETAMINOPHEN
  14. CIALIS [Concomitant]
     Active Substance: TADALAFIL
  15. TESTOSTERONE CYPIONATE [Concomitant]
     Active Substance: TESTOSTERONE CYPIONATE
  16. Lmx [Concomitant]
  17. DIPHENHYDRAMINE [Concomitant]
     Active Substance: DIPHENHYDRAMINE
  18. METFORMIN [Concomitant]
     Active Substance: METFORMIN HYDROCHLORIDE
  19. ALBUTEROL SULFATE [Concomitant]
     Active Substance: ALBUTEROL SULFATE
  20. VITAMINS [Concomitant]
     Active Substance: VITAMINS

REACTIONS (48)
  - Post-acute COVID-19 syndrome [Unknown]
  - Diabetes mellitus [Unknown]
  - Type 2 diabetes mellitus [Unknown]
  - Cerebrovascular accident [Unknown]
  - Myocardial infarction [Unknown]
  - Arterial occlusive disease [Unknown]
  - Blood glucose fluctuation [Unknown]
  - COVID-19 [Unknown]
  - Weight decreased [Unknown]
  - Blood glucose increased [Unknown]
  - Ear infection [Unknown]
  - Respiratory tract congestion [Unknown]
  - Injection site bruising [Unknown]
  - Aphasia [Unknown]
  - Nasopharyngitis [Unknown]
  - Fungal infection [Unknown]
  - Fall [Unknown]
  - Obstruction [Unknown]
  - Sinus disorder [Unknown]
  - Exposure to toxic agent [Unknown]
  - Road traffic accident [Unknown]
  - Neck pain [Unknown]
  - Insurance issue [Unknown]
  - Product dose omission issue [Unknown]
  - Gait disturbance [Unknown]
  - Inappropriate schedule of product administration [Unknown]
  - Gait inability [Unknown]
  - Intentional product misuse [Unknown]
  - Wrong technique in product usage process [Unknown]
  - Product use issue [Unknown]
  - Intervertebral disc protrusion [Unknown]
  - Accident [Unknown]
  - Sinusitis [Unknown]
  - Injection site mass [Unknown]
  - Asthma [Unknown]
  - Hypoaesthesia [Not Recovered/Not Resolved]
  - Palpitations [Unknown]
  - Influenza [Unknown]
  - Abdominal discomfort [Unknown]
  - Amnesia [Unknown]
  - Blood pressure increased [Unknown]
  - Malaise [Unknown]
  - Injection site pain [Unknown]
  - Infusion site swelling [Recovered/Resolved]
  - Arthralgia [Unknown]
  - Headache [Unknown]
  - Nausea [Unknown]
  - Fatigue [Recovered/Resolved]

NARRATIVE: CASE EVENT DATE: 20240503
